FAERS Safety Report 9416083 (Version 1)
Quarter: 2013Q3

REPORT INFORMATION
  Report Type: Spontaneous
  Country: US (occurrence: None)
  Receive Date: 20130723
  Receipt Date: 20130723
  Transmission Date: 20140515
  Serious: Yes (Hospitalization)
  Sender: FDA-Public Use
  Company Number: None

PATIENT
  Age: 2 Month
  Sex: Male
  Weight: 75.2 kg

DRUGS (1)
  1. PRIVIGEN [Suspect]
     Route: 041
     Dates: start: 20130524, end: 20130529

REACTIONS (8)
  - Asthenia [None]
  - Headache [None]
  - Infection [None]
  - Vasculitis [None]
  - Autoimmune disorder [None]
  - Paraneoplastic syndrome [None]
  - Haemolysis [None]
  - Red blood cell spherocytes present [None]
